FAERS Safety Report 4907148-3 (Version None)
Quarter: 2006Q1

REPORT INFORMATION
  Report Type: 
  Country: None (occurrence: None)
  Receive Date: 20060206
  Receipt Date: 20060110
  Transmission Date: 20060701
  Serious: Yes (Death, Life-Threatening)
  Sender: FDA-Public Use
  Company Number: JPKYO-S-20050032 - V001

PATIENT
  Age: 66 Year
  Sex: Male

DRUGS (3)
  1. NAVELBINE (VINORELBINE) SOLUTION FOR INJECTION [Suspect]
     Indication: NON-SMALL CELL LUNG CANCER STAGE IIIB
     Route: 042
     Dates: start: 20051108, end: 20051115
  2. TS 1 /JPN/ TEGAFUR, GIMERACIL, OTERACIL POTASSIUM [Suspect]
     Indication: NON-SMALL CELL LUNG CANCER STAGE IIIB
     Route: 048
     Dates: start: 20051109, end: 20051113
  3. TS 1 /JPN/ TEGAFUR, GIMERACIL, OTERACIL POTASSIUM [Suspect]
     Indication: NON-SMALL CELL LUNG CANCER STAGE IIIB
     Route: 048
     Dates: start: 20051116, end: 20051120

REACTIONS (8)
  - CARDIAC TAMPONADE [None]
  - EMPHYSEMA [None]
  - INTERSTITIAL LUNG DISEASE [None]
  - PLEURAL EFFUSION [None]
  - PNEUMOCYSTIS JIROVECI PNEUMONIA [None]
  - PNEUMONIA BACTERIAL [None]
  - PNEUMONIA CYTOMEGALOVIRAL [None]
  - PNEUMONIA VIRAL [None]
